FAERS Safety Report 24465193 (Version 1)
Quarter: 2024Q4

REPORT INFORMATION
  Report Type: Report from Study
  Country: US (occurrence: US)
  Receive Date: 20241018
  Receipt Date: 20241018
  Transmission Date: 20250114
  Serious: No
  Sender: ROCHE
  Company Number: US-ROCHE-3518495

PATIENT
  Sex: Male
  Weight: 116.12 kg

DRUGS (50)
  1. XOLAIR [Suspect]
     Active Substance: OMALIZUMAB
     Indication: Idiopathic urticaria
     Dosage: 150MG IN UPPER LEFT ARM AND UPPER RIGHT ARM
     Route: 058
     Dates: start: 20200414
  2. XOLAIR [Suspect]
     Active Substance: OMALIZUMAB
     Dosage: 150MG IN UPPER LEFT ARM AND UPPER RIGHT ARM
     Route: 058
     Dates: start: 20200512
  3. XOLAIR [Suspect]
     Active Substance: OMALIZUMAB
     Dosage: 150MG IN UPPER LEFT ARM AND UPPER RIGHT ARM
     Route: 058
     Dates: start: 20200623
  4. XOLAIR [Suspect]
     Active Substance: OMALIZUMAB
     Dosage: 150MG IN UPPER LEFT ARM AND UPPER RIGHT ARM
     Route: 058
     Dates: start: 20200721
  5. XOLAIR [Suspect]
     Active Substance: OMALIZUMAB
     Dosage: 150MG IN UPPER LEFT ARM AND UPPER RIGHT ARM
     Route: 058
     Dates: start: 20200303
  6. XOLAIR [Suspect]
     Active Substance: OMALIZUMAB
     Dosage: 150MG IN UPPER LEFT ARM AND UPPER RIGHT ARM
     Route: 058
     Dates: start: 20200818
  7. XOLAIR [Suspect]
     Active Substance: OMALIZUMAB
     Dosage: 150MG IN UPPER LEFT ARM AND UPPER RIGHT ARM
     Route: 058
     Dates: start: 20200922
  8. XOLAIR [Suspect]
     Active Substance: OMALIZUMAB
     Dosage: 150MG IN UPPER LEFT ARM AND UPPER RIGHT ARM
     Route: 058
     Dates: start: 20201201
  9. XOLAIR [Suspect]
     Active Substance: OMALIZUMAB
     Dosage: 150MG IN UPPER LEFT ARM AND UPPER RIGHT ARM
     Route: 058
     Dates: start: 20210112
  10. XOLAIR [Suspect]
     Active Substance: OMALIZUMAB
     Dosage: 150MG IN UPPER LEFT ARM AND UPPER RIGHT ARM
     Route: 058
     Dates: start: 20210209
  11. XOLAIR [Suspect]
     Active Substance: OMALIZUMAB
     Dosage: 150MG IN UPPER LEFT ARM AND UPPER RIGHT ARM
     Route: 058
     Dates: start: 20210316
  12. XOLAIR [Suspect]
     Active Substance: OMALIZUMAB
     Dosage: 150MG IN UPPER LEFT ARM AND UPPER RIGHT ARM
     Route: 058
     Dates: start: 20210413
  13. XOLAIR [Suspect]
     Active Substance: OMALIZUMAB
     Dosage: 150MG IN UPPER LEFT ARM AND UPPER RIGHT ARM
     Route: 058
     Dates: start: 20210518
  14. XOLAIR [Suspect]
     Active Substance: OMALIZUMAB
     Dosage: 150MG IN UPPER LEFT ARM AND UPPER RIGHT ARM
     Route: 058
     Dates: start: 20210622
  15. XOLAIR [Suspect]
     Active Substance: OMALIZUMAB
     Dosage: 150MG IN UPPER LEFT ARM AND UPPER RIGHT ARM
     Route: 058
     Dates: start: 20210720
  16. XOLAIR [Suspect]
     Active Substance: OMALIZUMAB
     Dosage: 150MG IN UPPER LEFT ARM AND UPPER RIGHT ARM
     Route: 058
     Dates: start: 20210817
  17. XOLAIR [Suspect]
     Active Substance: OMALIZUMAB
     Dosage: 150MG IN UPPER LEFT ARM AND UPPER RIGHT ARM
     Route: 058
     Dates: start: 20210913
  18. XOLAIR [Suspect]
     Active Substance: OMALIZUMAB
     Dosage: 150MG IN UPPER LEFT ARM AND UPPER RIGHT ARM
     Route: 058
     Dates: start: 20211012
  19. XOLAIR [Suspect]
     Active Substance: OMALIZUMAB
     Dosage: 150MG IN UPPER LEFT ARM AND UPPER RIGHT ARM
     Route: 058
     Dates: start: 20211116
  20. XOLAIR [Suspect]
     Active Substance: OMALIZUMAB
     Dosage: 150MG IN UPPER LEFT ARM AND UPPER RIGHT ARM
     Route: 058
     Dates: start: 20211207
  21. XOLAIR [Suspect]
     Active Substance: OMALIZUMAB
     Dosage: 150MG IN UPPER LEFT ARM AND UPPER RIGHT ARM
     Route: 058
     Dates: start: 20220111
  22. XOLAIR [Suspect]
     Active Substance: OMALIZUMAB
     Dosage: 150MG IN UPPER LEFT ARM AND UPPER RIGHT ARM
     Route: 058
     Dates: start: 20220215
  23. XOLAIR [Suspect]
     Active Substance: OMALIZUMAB
     Dosage: 150MG IN UPPER LEFT ARM AND UPPER RIGHT ARM
     Route: 058
     Dates: start: 20220322
  24. XOLAIR [Suspect]
     Active Substance: OMALIZUMAB
     Dosage: 150MG IN UPPER LEFT ARM AND UPPER RIGHT ARM
     Route: 058
     Dates: start: 20220412
  25. XOLAIR [Suspect]
     Active Substance: OMALIZUMAB
     Dosage: 150MG IN UPPER LEFT ARM AND UPPER RIGHT ARM
     Route: 058
     Dates: start: 20220517
  26. XOLAIR [Suspect]
     Active Substance: OMALIZUMAB
     Dosage: 150MG IN UPPER LEFT ARM AND UPPER RIGHT ARM
     Route: 058
     Dates: start: 20220621
  27. XOLAIR [Suspect]
     Active Substance: OMALIZUMAB
     Dosage: 150MG IN UPPER LEFT ARM AND UPPER RIGHT ARM
     Route: 058
     Dates: start: 20220726
  28. XOLAIR [Suspect]
     Active Substance: OMALIZUMAB
     Dosage: 150MG IN UPPER LEFT ARM AND UPPER RIGHT ARM
     Route: 058
     Dates: start: 20220823
  29. XOLAIR [Suspect]
     Active Substance: OMALIZUMAB
     Dosage: 150MG IN UPPER LEFT ARM AND UPPER RIGHT ARM
     Route: 058
     Dates: start: 20220916
  30. XOLAIR [Suspect]
     Active Substance: OMALIZUMAB
     Dosage: 150MG IN UPPER LEFT ARM AND UPPER RIGHT ARM
     Route: 058
     Dates: start: 20221018
  31. XOLAIR [Suspect]
     Active Substance: OMALIZUMAB
     Dosage: 150MG IN UPPER LEFT ARM AND UPPER RIGHT ARM
     Route: 058
     Dates: start: 20221107
  32. XOLAIR [Suspect]
     Active Substance: OMALIZUMAB
     Dosage: 150MG IN UPPER LEFT ARM AND UPPER RIGHT ARM
     Route: 058
     Dates: start: 20221213
  33. XOLAIR [Suspect]
     Active Substance: OMALIZUMAB
     Dosage: 150MG IN UPPER LEFT ARM AND UPPER RIGHT ARM
     Route: 058
     Dates: start: 20230124
  34. XOLAIR [Suspect]
     Active Substance: OMALIZUMAB
     Dosage: 150MG IN UPPER LEFT ARM AND UPPER RIGHT ARM
     Route: 058
     Dates: start: 20230221
  35. XOLAIR [Suspect]
     Active Substance: OMALIZUMAB
     Dosage: 150MG IN UPPER LEFT ARM AND UPPER RIGHT ARM
     Route: 058
     Dates: start: 20230314
  36. XOLAIR [Suspect]
     Active Substance: OMALIZUMAB
     Dosage: 150MG IN UPPER LEFT ARM AND UPPER RIGHT ARM
     Route: 058
     Dates: start: 20230418
  37. XOLAIR [Suspect]
     Active Substance: OMALIZUMAB
     Dosage: 150MG IN UPPER LEFT ARM AND UPPER RIGHT ARM
     Route: 058
     Dates: start: 20230523
  38. XOLAIR [Suspect]
     Active Substance: OMALIZUMAB
     Dosage: 150MG IN UPPER LEFT ARM AND UPPER RIGHT ARM
     Route: 058
     Dates: start: 20230711
  39. XOLAIR [Suspect]
     Active Substance: OMALIZUMAB
     Dosage: 150MG IN UPPER LEFT ARM AND UPPER RIGHT ARM
     Route: 058
     Dates: start: 20230822
  40. XOLAIR [Suspect]
     Active Substance: OMALIZUMAB
     Dosage: 150MG IN UPPER LEFT ARM AND UPPER RIGHT ARM
     Route: 058
     Dates: start: 20230926
  41. XOLAIR [Suspect]
     Active Substance: OMALIZUMAB
     Dosage: 150MG IN UPPER LEFT ARM AND UPPER RIGHT ARM
     Route: 058
     Dates: start: 20231024
  42. XOLAIR [Suspect]
     Active Substance: OMALIZUMAB
     Dosage: 150MG IN UPPER LEFT ARM AND UPPER RIGHT ARM
     Route: 058
     Dates: start: 20231114
  43. XOLAIR [Suspect]
     Active Substance: OMALIZUMAB
     Dosage: 150MG IN UPPER LEFT ARM AND UPPER RIGHT ARM
     Route: 058
     Dates: start: 20240109
  44. XOLAIR [Suspect]
     Active Substance: OMALIZUMAB
     Route: 058
  45. XOLAIR [Suspect]
     Active Substance: OMALIZUMAB
     Route: 058
  46. XOLAIR [Suspect]
     Active Substance: OMALIZUMAB
     Route: 058
  47. XHANCE [Concomitant]
     Active Substance: FLUTICASONE PROPIONATE
  48. DOXEPIN [Concomitant]
     Active Substance: DOXEPIN
  49. ZANTAC [Concomitant]
     Active Substance: RANITIDINE HYDROCHLORIDE
  50. RANITIDINE [Concomitant]
     Active Substance: RANITIDINE

REACTIONS (13)
  - Nasal congestion [Unknown]
  - Cough [Unknown]
  - Sneezing [Unknown]
  - Paranasal sinus discomfort [Unknown]
  - Headache [Unknown]
  - Rash [Unknown]
  - Vasomotor rhinitis [Unknown]
  - Sleep apnoea syndrome [Unknown]
  - Pruritus [Unknown]
  - Erythema [Unknown]
  - Dyspepsia [Unknown]
  - Dysphonia [Unknown]
  - Oropharyngeal pain [Unknown]
